FAERS Safety Report 6259563-6 (Version None)
Quarter: 2009Q3

REPORT INFORMATION
  Report Type: 
  Country: None (occurrence: None)
  Receive Date: 20090708
  Receipt Date: 20090625
  Transmission Date: 20100115
  Serious: Yes (Other)
  Sender: FDA-Public Use
  Company Number: GB-PFIZER INC-2009231942

PATIENT
  Age: 33 Year

DRUGS (4)
  1. CHAMPIX [Suspect]
     Indication: SMOKING CESSATION THERAPY
     Dosage: 500 UG, UNK
     Route: 048
     Dates: start: 20090527, end: 20090602
  2. AMOXICILLIN [Concomitant]
     Indication: LOWER RESPIRATORY TRACT INFECTION
     Dosage: 500 MG, 3X/DAY
     Route: 048
     Dates: start: 20090527, end: 20090602
  3. QVAR 40 [Concomitant]
     Indication: ASTHMA
     Route: 055
  4. SALBUTAMOL [Concomitant]

REACTIONS (4)
  - AGITATION [None]
  - FOAMING AT MOUTH [None]
  - MUSCULOSKELETAL STIFFNESS [None]
  - TREMOR [None]
